FAERS Safety Report 7578811-3 (Version None)
Quarter: 2011Q2

REPORT INFORMATION
  Report Type: 
  Country: None (occurrence: None)
  Receive Date: 20110628
  Receipt Date: 20110620
  Transmission Date: 20111010
  Serious: Yes (Death, Hospitalization, Other)
  Sender: FDA-Public Use
  Company Number: RO-ABBOTT-11P-135-0724428-00

PATIENT
  Sex: Male
  Weight: 59 kg

DRUGS (16)
  1. MONOPRIL [Concomitant]
     Indication: HYPERTENSION
     Route: 048
     Dates: start: 20101001, end: 20110506
  2. VITAMINE E FORTE [Concomitant]
     Indication: PRODUCT USED FOR UNKNOWN INDICATION
     Dates: start: 20110407
  3. NEORECORMON [Concomitant]
     Indication: ANAEMIA
     Route: 058
     Dates: start: 20101119, end: 20110506
  4. MILURIT [Concomitant]
     Indication: HYPERURICAEMIA
     Route: 048
     Dates: start: 20101227, end: 20110506
  5. ALPRAZOLAM [Concomitant]
     Indication: PRODUCT USED FOR UNKNOWN INDICATION
     Dosage: 1/2 TABLET WHEN REQUIRED
     Dates: start: 20110407
  6. ANTACID [Concomitant]
     Indication: PRODUCT USED FOR UNKNOWN INDICATION
     Dates: start: 20110407
  7. ZEMPLAR [Suspect]
     Indication: HYPERPARATHYROIDISM SECONDARY
     Route: 048
     Dates: start: 20101119, end: 20101227
  8. ZEMPLAR [Suspect]
     Route: 048
     Dates: start: 20110415, end: 20110506
  9. NORVASC [Concomitant]
     Indication: HYPERTENSION
     Route: 048
     Dates: start: 20110101, end: 20110506
  10. S-VITA [Concomitant]
     Indication: PRODUCT USED FOR UNKNOWN INDICATION
     Dates: start: 20110407
  11. ZEMPLAR [Suspect]
     Route: 048
     Dates: start: 20101227, end: 20110131
  12. ACETYLCYSTEINE [Concomitant]
     Indication: PRODUCT USED FOR UNKNOWN INDICATION
     Dates: start: 20110407
  13. ZEMPLAR [Suspect]
     Route: 048
     Dates: start: 20110131, end: 20110301
  14. ZEMPLAR [Suspect]
     Route: 048
     Dates: start: 20110301, end: 20110415
  15. METOPROLOLUM [Concomitant]
     Indication: HYPERTENSION
     Route: 048
     Dates: start: 20080101, end: 20110506
  16. COLCHICINE [Concomitant]
     Indication: PRODUCT USED FOR UNKNOWN INDICATION
     Dosage: DAILY, AS REQUIRED
     Dates: start: 20101227

REACTIONS (12)
  - DYSPNOEA [None]
  - AORTIC VALVE DISEASE [None]
  - ORTHOPNOEA [None]
  - NEPHROLITHIASIS [None]
  - WEIGHT DECREASED [None]
  - PROSTATIC ADENOMA [None]
  - GENERAL PHYSICAL HEALTH DETERIORATION [None]
  - MYOCARDIAL INFARCTION [None]
  - CARDIAC VALVE DISEASE [None]
  - CARDIAC FAILURE [None]
  - CONGESTIVE CARDIOMYOPATHY [None]
  - PULMONARY HYPERTENSION [None]
